FAERS Safety Report 13122857 (Version 4)
Quarter: 2017Q1

REPORT INFORMATION
  Report Type: Spontaneous
  Country: DE (occurrence: DE)
  Receive Date: 20170117
  Receipt Date: 20170328
  Transmission Date: 20170428
  Serious: Yes (Life-Threatening, Hospitalization, Other)
  Sender: FDA-Public Use
  Company Number: DE-GILEAD-2017-0253017

PATIENT
  Age: 71 Year
  Sex: Male
  Weight: 100 kg

DRUGS (1)
  1. ZYDELIG [Suspect]
     Active Substance: IDELALISIB
     Indication: B-CELL LYMPHOMA
     Dosage: 100 MG, UNK
     Route: 048
     Dates: start: 20160922, end: 20161222

REACTIONS (7)
  - Diarrhoea [Recovered/Resolved]
  - Colitis [Recovering/Resolving]
  - Electrolyte imbalance [Unknown]
  - Large intestinal ulcer [Recovering/Resolving]
  - Metabolic acidosis [Unknown]
  - Acute kidney injury [Unknown]
  - Dehydration [Unknown]

NARRATIVE: CASE EVENT DATE: 20161222
